FAERS Safety Report 8825267 (Version 2)
Quarter: 2012Q4

REPORT INFORMATION
  Report Type: 
  Country: US (occurrence: US)
  Receive Date: 20121004
  Receipt Date: 20121012
  Transmission Date: 20130627
  Serious: Yes (Other)
  Sender: FDA-Public Use
  Company Number: US-JNJFOC-20120911732

PATIENT
  Age: 74 Year
  Sex: Male

DRUGS (3)
  1. LISTERINE ANTISEPTIC MOUTHWASH [Suspect]
     Indication: GINGIVAL INFECTION
     Dosage: amount not sure, used in water pik. 1-2 times daily
     Route: 048
     Dates: start: 201206, end: 20120626
  2. LISTERINE ANTISEPTIC MOUTHWASH [Suspect]
     Indication: TOOTH INFECTION
     Dosage: amount not sure, used in water pik. 1-2 times daily
     Route: 048
     Dates: start: 201206, end: 20120626
  3. UNKNOWN MEDICATION [Concomitant]
     Route: 065

REACTIONS (5)
  - Blood alcohol increased [Recovered/Resolved]
  - Wrong technique in drug usage process [Unknown]
  - Accidental exposure to product [Unknown]
  - Incorrect dose administered [Unknown]
  - Off label use [Unknown]
